FAERS Safety Report 5097392-X (Version None)
Quarter: 2006Q3

REPORT INFORMATION
  Report Type: 
  Country: None (occurrence: None)
  Receive Date: 20060906
  Receipt Date: 20060829
  Transmission Date: 20061208
  Serious: Yes (Other)
  Sender: FDA-Public Use
  Company Number: NL-SANOFI-SYNTHELABO-A01200607106

PATIENT
  Sex: Female

DRUGS (3)
  1. FOLINIC ACID [Concomitant]
     Indication: COLON CANCER
     Dosage: 200 MG/M2 VIA INTRAVENOUS INFUSION
     Route: 042
     Dates: start: 20060828
  2. FLUOROURACIL [Concomitant]
     Indication: COLON CANCER
     Dosage: 1000 MG/ M2 VIA INTRAVENOUS INFUSION
     Route: 041
     Dates: start: 20060828
  3. ELOXATIN [Suspect]
     Indication: COLON CANCER
     Dosage: 85 MG/M2 INTRAVENOUSLY EVERY 2 WEEKS
     Route: 042
     Dates: start: 20060828, end: 20060828

REACTIONS (4)
  - ABDOMINAL PAIN [None]
  - DYSPNOEA [None]
  - FLUSHING [None]
  - LOSS OF CONSCIOUSNESS [None]
